FAERS Safety Report 8409542-5 (Version None)
Quarter: 2012Q2

REPORT INFORMATION
  Report Type: 
  Country: None (occurrence: None)
  Receive Date: 20120529
  Receipt Date: 20060711
  Transmission Date: 20120825
  Serious: Yes (Other)
  Sender: FDA-Public Use
  Company Number: JP-2012-12763

PATIENT

DRUGS (1)
  1. PLETAL [Suspect]
     Indication: CEREBRAL INFARCTION
     Dosage: UNK, BID

REACTIONS (7)
  - LIVER DISORDER [None]
  - HEADACHE [None]
  - RASH [None]
  - PYREXIA [None]
  - INTRAOCULAR PRESSURE INCREASED [None]
  - CATARACT [None]
  - UVEITIS [None]
